FAERS Safety Report 20708600 (Version 1)
Quarter: 2022Q2

REPORT INFORMATION
  Report Type: Spontaneous
  Country: FR (occurrence: FR)
  Receive Date: 20220414
  Receipt Date: 20220414
  Transmission Date: 20220720
  Serious: Yes (Life-Threatening, Hospitalization)
  Sender: FDA-Public Use
  Company Number: None

PATIENT
  Age: 45 Year
  Sex: Male

DRUGS (2)
  1. VIMPAT [Suspect]
     Active Substance: LACOSAMIDE
     Indication: Product prescribing error
     Dosage: UNK
     Dates: start: 20220221, end: 20220224
  2. KEPPRA [Suspect]
     Active Substance: LEVETIRACETAM
     Indication: Product prescribing error
     Dosage: UNK
     Dates: start: 20220221, end: 20220224

REACTIONS (3)
  - Generalised tonic-clonic seizure [Recovered/Resolved]
  - Product prescribing error [Unknown]
  - Product dose omission issue [Unknown]

NARRATIVE: CASE EVENT DATE: 20220224
